FAERS Safety Report 23923838 (Version 1)
Quarter: 2024Q2

REPORT INFORMATION
  Report Type: Spontaneous
  Country: US (occurrence: None)
  Receive Date: 20240531
  Receipt Date: 20240531
  Transmission Date: 20240715
  Serious: Yes (Hospitalization)
  Sender: FDA-Public Use
  Company Number: US-ROCHE-3570173

PATIENT
  Age: 60 Year
  Sex: Female

DRUGS (29)
  1. XOLAIR [Suspect]
     Active Substance: OMALIZUMAB
     Indication: Essential hypertension
     Route: 058
  2. XOLAIR [Suspect]
     Active Substance: OMALIZUMAB
  3. XOLAIR [Suspect]
     Active Substance: OMALIZUMAB
  4. PROVENTIL HFA [Concomitant]
     Active Substance: ALBUTEROL SULFATE
  5. PREDNISONE [Concomitant]
     Active Substance: PREDNISONE
  6. ZITHROMAX [Concomitant]
     Active Substance: AZITHROMYCIN DIHYDRATE
  7. ETHAMBUTOL [Concomitant]
     Active Substance: ETHAMBUTOL HYDROCHLORIDE
  8. RIFABUTIN [Concomitant]
     Active Substance: RIFABUTIN
  9. LEVAQUIN [Concomitant]
     Active Substance: LEVOFLOXACIN
  10. METOLAZONE [Concomitant]
     Active Substance: METOLAZONE
  11. ALBUTEROL [Concomitant]
     Active Substance: ALBUTEROL
  12. AZELASTINE [Concomitant]
     Active Substance: AZELASTINE\AZELASTINE HYDROCHLORIDE
  13. AZELASTINE HYDROCHLORIDE [Concomitant]
     Active Substance: AZELASTINE HYDROCHLORIDE
  14. DIAZEPAM [Concomitant]
     Active Substance: DIAZEPAM
  15. DIHYDROERGOTAMINE [Concomitant]
     Active Substance: DIHYDROERGOTAMINE
  16. DIPHENHYDRAMINE [Concomitant]
     Active Substance: DIPHENHYDRAMINE
  17. FLUTICASONE [Concomitant]
     Active Substance: FLUTICASONE
  18. EPIPEN [Concomitant]
     Active Substance: EPINEPHRINE
  19. FUROSEMIDE [Concomitant]
     Active Substance: FUROSEMIDE
  20. GABAPENTIN [Concomitant]
     Active Substance: GABAPENTIN
  21. HYDROCHLOROTHIAZIDE [Concomitant]
     Active Substance: HYDROCHLOROTHIAZIDE
  22. LISINOPRIL [Concomitant]
     Active Substance: LISINOPRIL
  23. MONTELUKAST [Concomitant]
     Active Substance: MONTELUKAST SODIUM
  24. PROZAC [Concomitant]
     Active Substance: FLUOXETINE HYDROCHLORIDE
  25. SYMBICORT [Concomitant]
     Active Substance: BUDESONIDE\FORMOTEROL FUMARATE DIHYDRATE
  26. WELLBUTRIN [Concomitant]
     Active Substance: BUPROPION HYDROCHLORIDE
  27. PROTONIX [Concomitant]
     Active Substance: PANTOPRAZOLE SODIUM
  28. TYLENOL [Concomitant]
     Active Substance: ACETAMINOPHEN
  29. ZOFRAN [Concomitant]
     Active Substance: ONDANSETRON HYDROCHLORIDE

REACTIONS (7)
  - Pneumonia [Unknown]
  - Atypical mycobacterial lower respiratory tract infection [Unknown]
  - Illness [Unknown]
  - Thermal burn [Unknown]
  - Dyspnoea [Unknown]
  - Off label use [Unknown]
  - Asthma [Unknown]
